FAERS Safety Report 17135132 (Version 7)
Quarter: 2023Q1

REPORT INFORMATION
  Report Type: Spontaneous
  Country: US (occurrence: US)
  Receive Date: 20191210
  Receipt Date: 20230120
  Transmission Date: 20230418
  Serious: Yes (Other)
  Sender: FDA-Public Use
  Company Number: US-PFIZER INC-2019489075

PATIENT
  Age: 75 Year
  Sex: Female

DRUGS (2)
  1. IBRANCE [Suspect]
     Active Substance: PALBOCICLIB
     Indication: Breast cancer female
     Dosage: 125 MG, CYCLIC (TAKE 125 MG BY MOUTH DAILY^ 28 DAY SUPPLY)
     Route: 048
  2. IBRANCE [Suspect]
     Active Substance: PALBOCICLIB
     Dosage: 100 MG, CYCLIC (TAKE 1 TABLET DAILY. TAKE D1-21, Q 4 WEEKS)
     Route: 048

REACTIONS (4)
  - Myelosuppression [Unknown]
  - Pancytopenia [Unknown]
  - Neoplasm progression [Unknown]
  - Nasopharyngitis [Unknown]
